FAERS Safety Report 8508055-X (Version None)
Quarter: 2012Q3

REPORT INFORMATION
  Report Type: 
  Country: None (occurrence: None)
  Receive Date: 20120713
  Receipt Date: 20120706
  Transmission Date: 20120928
  Serious: Yes (Hospitalization, Other)
  Sender: FDA-Public Use
  Company Number: US-BAYER-2012-024515

PATIENT
  Age: 29 Year
  Sex: Female

DRUGS (8)
  1. YAZ [Suspect]
     Dosage: UNK
     Dates: start: 20071106, end: 20100501
  2. AZITHROMYCIN [Concomitant]
     Dosage: 250 MG, UNK
     Dates: start: 20100427
  3. OXYGEN [Concomitant]
     Indication: DYSPNOEA
  4. PROAIR HFA [Concomitant]
     Route: 045
  5. YASMIN [Suspect]
     Dosage: UNK
     Dates: start: 20071101
  6. TAMIFLU [Concomitant]
     Dosage: 75 MG, UNK
     Dates: start: 20100427
  7. DROSPIRENONE AND ETHINYL ESTRADIOL [Suspect]
     Dosage: UNK
     Dates: end: 20100501
  8. PROMETHAZINE W/ CODEINE [Concomitant]
     Dosage: UNK
     Dates: start: 20100427

REACTIONS (3)
  - DEEP VEIN THROMBOSIS [None]
  - PULMONARY EMBOLISM [None]
  - THROMBOSIS [None]
